FAERS Safety Report 15735181 (Version 1)
Quarter: 2018Q4

REPORT INFORMATION
  Report Type: Spontaneous
  Country: US (occurrence: US)
  Receive Date: 20181203
  Receipt Date: 20181203
  Transmission Date: 20190205
  Serious: Yes (Life-Threatening, Disabling)
  Sender: FDA-Public Use
  Company Number: None

PATIENT
  Age: 53 Year
  Sex: Female
  Weight: 62.1 kg

DRUGS (1)
  1. LORSARTAN POTASSIUM AND AMLODIPINE BESYLATE [Suspect]
     Active Substance: AMLODIPINE\LOSARTAN POTASSIUM
     Indication: HYPERTENSION
     Dosage: ?          QUANTITY:1 TABLET(S);?
     Route: 048
     Dates: start: 20110209, end: 20181128

REACTIONS (3)
  - Product contamination [None]
  - Recalled product administered [None]
  - Chronic myeloid leukaemia [None]

NARRATIVE: CASE EVENT DATE: 20180519
